APPROVED DRUG PRODUCT: TOPIRAMATE
Active Ingredient: TOPIRAMATE
Strength: 50MG
Dosage Form/Route: CAPSULE, EXTENDED RELEASE;ORAL
Application: A217443 | Product #002 | TE Code: AB1
Applicant: ASCENT PHARMACEUTICALS INC
Approved: Jan 12, 2026 | RLD: No | RS: No | Type: RX